FAERS Safety Report 8784198 (Version 1)
Quarter: 2012Q4

REPORT INFORMATION
  Report Type: Spontaneous
  Country: US (occurrence: None)
  Receive Date: 20120906
  Receipt Date: 20120906
  Transmission Date: 20130627
  Serious: Yes (Other)
  Sender: FDA-Public Use
  Company Number: None

PATIENT
  Age: 26 Year
  Sex: Female
  Weight: 61.4 kg

DRUGS (1)
  1. SUBOXONE [Suspect]
     Indication: OPIOID TYPE DEPENDENCE
     Dosage: DATE : aUG
8MG/2MG STRIP  ONCE DAILY
     Route: 060

REACTIONS (2)
  - Headache [None]
  - Therapeutic response decreased [None]
